FAERS Safety Report 4388419-9 (Version None)
Quarter: 2004Q3

REPORT INFORMATION
  Report Type: 
  Country: None (occurrence: None)
  Receive Date: 20040701
  Receipt Date: 20040609
  Transmission Date: 20050211
  Serious: Yes (Hospitalization)
  Sender: FDA-Public Use
  Company Number: CA-ROCHE-370633

PATIENT
  Age: 42 Year
  Sex: Male
  Weight: 100 kg

DRUGS (4)
  1. MYCOPHENOLATE MOFETIL [Suspect]
     Route: 048
     Dates: start: 20020416
  2. PREDNISONE [Concomitant]
     Dates: start: 20030306
  3. CYCLOSPORINE [Concomitant]
     Dates: start: 20040525
  4. ALTACE [Concomitant]
     Dates: start: 20040429

REACTIONS (1)
  - ASEPTIC NECROSIS BONE [None]
